FAERS Safety Report 7548063-9 (Version None)
Quarter: 2011Q2

REPORT INFORMATION
  Report Type: 
  Country: None (occurrence: None)
  Receive Date: 20110615
  Receipt Date: 20110601
  Transmission Date: 20111010
  Serious: Yes (Other)
  Sender: FDA-Public Use
  Company Number: US-ELI_LILLY_AND_COMPANY-US201106000510

PATIENT
  Sex: Female

DRUGS (12)
  1. PLAVIX [Concomitant]
  2. SYNTHROID [Concomitant]
  3. FISH OIL [Concomitant]
  4. FORTEO [Suspect]
     Dosage: 20 UG, QD
     Route: 065
  5. ZOLOFT [Concomitant]
  6. VITAMIN D [Concomitant]
     Dosage: UNK, MONTHLY (1/M)
  7. FORTEO [Suspect]
     Indication: OSTEOPOROSIS
     Dosage: 20 UG, QD
     Route: 065
     Dates: start: 20110418
  8. GLUCOSAMINE [Concomitant]
  9. CRESTOR [Concomitant]
  10. DIOVAN [Concomitant]
  11. CELEBREX [Concomitant]
  12. MULTI-VITAMIN [Concomitant]

REACTIONS (14)
  - MUSCLE INJURY [None]
  - PAIN IN EXTREMITY [None]
  - PARAESTHESIA [None]
  - FEELING ABNORMAL [None]
  - WEIGHT DECREASED [None]
  - HAEMOSTASIS [None]
  - PAIN [None]
  - CONSTIPATION [None]
  - CEMENTOPLASTY [None]
  - MUSCULOSKELETAL CHEST PAIN [None]
  - BACK PAIN [None]
  - FATIGUE [None]
  - DYSURIA [None]
  - KIDNEY INFECTION [None]
